FAERS Safety Report 19648749 (Version 1)
Quarter: 2021Q3

REPORT INFORMATION
  Report Type: Spontaneous
  Country: US (occurrence: US)
  Receive Date: 20210803
  Receipt Date: 20210803
  Transmission Date: 20211014
  Serious: No
  Sender: FDA-Public Use
  Company Number: US-TEVA-2021-US-1935488

PATIENT

DRUGS (2)
  1. AIRDUO RESPICLICK [Suspect]
     Active Substance: FLUTICASONE PROPIONATE\SALMETEROL XINAFOATE
     Route: 065
     Dates: start: 2021
  2. AIRDUO RESPICLICK [Suspect]
     Active Substance: FLUTICASONE PROPIONATE\SALMETEROL XINAFOATE

REACTIONS (2)
  - Periodontal disease [Recovered/Resolved]
  - Tooth loss [Unknown]

NARRATIVE: CASE EVENT DATE: 2021
